FAERS Safety Report 9429946 (Version 1)
Quarter: 2013Q3

REPORT INFORMATION
  Report Type: Spontaneous
  Country: US (occurrence: US)
  Receive Date: 20130730
  Receipt Date: 20130730
  Transmission Date: 20140515
  Serious: No
  Sender: FDA-Public Use
  Company Number: US-ABBOTT-13P-163-1049251-00

PATIENT
  Sex: Female
  Weight: 63.56 kg

DRUGS (16)
  1. NIASPAN (COATED) [Suspect]
     Indication: BLOOD CHOLESTEROL INCREASED
     Dates: start: 2006, end: 201208
  2. NIASPAN (COATED) [Suspect]
     Dates: start: 201210
  3. COUMADIN [Concomitant]
     Indication: THROMBOSIS PROPHYLAXIS
  4. SYNTHROID [Concomitant]
     Indication: THYROID DISORDER
  5. DIGOXIN [Concomitant]
     Indication: HEART RATE IRREGULAR
  6. ATENOLOL [Concomitant]
     Indication: HYPERTENSION
  7. SINGULAIR [Concomitant]
     Indication: ASTHMA
  8. PRAVASTATIN [Concomitant]
     Indication: BLOOD CHOLESTEROL INCREASED
  9. VERAPAMIL [Concomitant]
     Indication: HYPERTENSION
  10. ASMANEX [Concomitant]
     Indication: ASTHMA
     Route: 055
  11. PROVENTIL [Concomitant]
     Indication: ASTHMA
  12. FISH OIL [Concomitant]
     Indication: SUPPLEMENTATION THERAPY
  13. COSAMIN DS [Concomitant]
     Indication: SUPPLEMENTATION THERAPY
  14. FOLIC ACID [Concomitant]
     Indication: SUPPLEMENTATION THERAPY
  15. CITRICAL [Concomitant]
     Indication: CONSTIPATION
  16. VITAMIN D [Concomitant]
     Indication: HYPOVITAMINOSIS

REACTIONS (1)
  - Flushing [Not Recovered/Not Resolved]
